FAERS Safety Report 11415785 (Version 1)
Quarter: 2015Q3

REPORT INFORMATION
  Report Type: Spontaneous
  Country: US (occurrence: None)
  Receive Date: 20150824
  Receipt Date: 20150824
  Transmission Date: 20151125
  Serious: Yes (Other)
  Sender: FDA-Public Use
  Company Number: None

PATIENT
  Age: 77 Year
  Sex: Female

DRUGS (1)
  1. FORTEO [Suspect]
     Active Substance: TERIPARATIDE
     Indication: OSTEOPOROSIS
     Dosage: FORTEO 250 MCG/ML  DAILY  SUBCUTANEOUS
     Route: 058
     Dates: start: 20150623, end: 20150630

REACTIONS (2)
  - Dizziness [None]
  - Neuropathy peripheral [None]

NARRATIVE: CASE EVENT DATE: 20150630
